FAERS Safety Report 20518941 (Version 1)
Quarter: 2022Q1

REPORT INFORMATION
  Report Type: Spontaneous
  Country: US (occurrence: US)
  Receive Date: 20220225
  Receipt Date: 20220225
  Transmission Date: 20220423
  Serious: Yes (Other)
  Sender: FDA-Public Use
  Company Number: US-JNJFOC-20211133639

PATIENT
  Sex: Male

DRUGS (3)
  1. RISPERDAL [Suspect]
     Active Substance: RISPERIDONE
     Indication: Product used for unknown indication
     Dosage: 1 MG PER ORAL EVERY MORNING AND AT BEDTIME
     Route: 048
     Dates: end: 20030805
  2. RISPERDAL [Suspect]
     Active Substance: RISPERIDONE
     Dosage: 1 MG PER ORAL AT BEDTIME
     Route: 048
     Dates: start: 20030805, end: 20030919
  3. CYLERT [Suspect]
     Active Substance: PEMOLINE
     Indication: Product used for unknown indication
     Route: 048
     Dates: end: 20030919

REACTIONS (1)
  - Obesity [Not Recovered/Not Resolved]
